FAERS Safety Report 8992811 (Version 1)
Quarter: 2013Q1

REPORT INFORMATION
  Report Type: Spontaneous
  Country: US (occurrence: US)
  Receive Date: 20130102
  Receipt Date: 20130102
  Transmission Date: 20140127
  Serious: No
  Sender: FDA-Public Use
  Company Number: US-009507513-1212USA011087

PATIENT
  Sex: 0

DRUGS (1)
  1. NASONEX [Suspect]
     Route: 045

REACTIONS (1)
  - No therapeutic response [Not Recovered/Not Resolved]
